FAERS Safety Report 6457279-4 (Version None)
Quarter: 2009Q4

REPORT INFORMATION
  Report Type: 
  Country: None (occurrence: None)
  Receive Date: 20091125
  Receipt Date: 20091116
  Transmission Date: 20100525
  Serious: Yes (Other)
  Sender: FDA-Public Use
  Company Number: US-PFIZER INC-2009298528

PATIENT
  Age: 41 Year
  Sex: Male

DRUGS (5)
  1. VFEND [Suspect]
     Dosage: 250 MG, 2X/DAY
  2. METHYLPREDNISOLONE [Concomitant]
  3. TACROLIMUS [Concomitant]
  4. ETANERCEPT [Suspect]
  5. RITUXIMAB [Concomitant]

REACTIONS (2)
  - PHOTOSENSITIVITY REACTION [None]
  - SQUAMOUS CELL CARCINOMA [None]
